FAERS Safety Report 7473127-8 (Version None)
Quarter: 2011Q1

REPORT INFORMATION
  Report Type: 
  Country: None (occurrence: None)
  Receive Date: 20110302
  Receipt Date: 20101123
  Transmission Date: 20110831
  Serious: Yes (Other)
  Sender: FDA-Public Use
  Company Number: 163-21880-10113114

PATIENT
  Age: 74 Year
  Sex: Male

DRUGS (1)
  1. REVLIMID [Suspect]
     Indication: NEOPLASM SKIN
     Dosage: 10 MG, 1 IN 1 D, PO
     Route: 048
     Dates: start: 20101001

REACTIONS (2)
  - RHINORRHOEA [None]
  - RED BLOOD CELL COUNT DECREASED [None]
